FAERS Safety Report 4685692-4 (Version None)
Quarter: 2005Q2

REPORT INFORMATION
  Report Type: 
  Country: None (occurrence: None)
  Receive Date: 20050608
  Receipt Date: 20050527
  Transmission Date: 20051028
  Serious: Yes (Death)
  Sender: FDA-Public Use
  Company Number: 2005-05-1869

PATIENT
  Age: 54 Year
  Sex: Male

DRUGS (2)
  1. PEG-INTRON [Suspect]
     Dosage: SUBCUTANEOUS
     Route: 058
     Dates: start: 20050104
  2. RIBAVIRIN [Suspect]
     Dosage: ORAL
     Route: 048
     Dates: start: 20050104

REACTIONS (2)
  - COMPLETED SUICIDE [None]
  - MURDER [None]
